FAERS Safety Report 15738669 (Version 5)
Quarter: 2019Q2

REPORT INFORMATION
  Report Type: Spontaneous
  Country: US (occurrence: US)
  Receive Date: 20181219
  Receipt Date: 20190402
  Transmission Date: 20190711
  Serious: No
  Sender: FDA-Public Use
  Company Number: US-PFIZER INC-2018518498

PATIENT
  Age: 66 Year
  Sex: Female
  Weight: 65.76 kg

DRUGS (7)
  1. LYRICA [Suspect]
     Active Substance: PREGABALIN
     Indication: FIBROMYALGIA
     Dosage: 50 MG, UNK (1-2 TIMES A DAY/UP TO THREE TIMES A DAY)
     Route: 048
     Dates: start: 2017
  2. LYRICA [Suspect]
     Active Substance: PREGABALIN
     Indication: NEUROPATHY PERIPHERAL
  3. LYRICA [Suspect]
     Active Substance: PREGABALIN
     Indication: NEURALGIA
     Dosage: 50 MG, 2X/DAY
     Route: 048
  4. LYRICA [Suspect]
     Active Substance: PREGABALIN
     Indication: STENOSIS
  5. GABAPENTIN. [Concomitant]
     Active Substance: GABAPENTIN
     Indication: SLEEP DISORDER
     Dosage: 800 MG, UNK
  6. LYRICA [Suspect]
     Active Substance: PREGABALIN
     Indication: MYALGIA
  7. BOTOX [Concomitant]
     Active Substance: ONABOTULINUMTOXINA
     Indication: TORTICOLLIS
     Dosage: UNK
     Dates: start: 20190207

REACTIONS (6)
  - Withdrawal syndrome [Recovered/Resolved]
  - Underdose [Unknown]
  - Paraesthesia [Unknown]
  - Pain [Unknown]
  - Dyspnoea [Not Recovered/Not Resolved]
  - Pain in extremity [Unknown]

NARRATIVE: CASE EVENT DATE: 2017
